FAERS Safety Report 11652400 (Version 2)
Quarter: 2015Q4

REPORT INFORMATION
  Report Type: Spontaneous
  Country: US (occurrence: US)
  Receive Date: 20151022
  Receipt Date: 20151116
  Transmission Date: 20160304
  Serious: Yes (Life-Threatening, Hospitalization, Other)
  Sender: FDA-Public Use
  Company Number: US-ELI_LILLY_AND_COMPANY-US201510005495

PATIENT
  Sex: Male

DRUGS (4)
  1. LEVOTHYROXINE. [Concomitant]
     Active Substance: LEVOTHYROXINE
     Dosage: UNK, UNKNOWN
     Route: 065
  2. CIALIS [Suspect]
     Active Substance: TADALAFIL
     Indication: PROSTATIC DISORDER
  3. CIALIS [Suspect]
     Active Substance: TADALAFIL
     Indication: ERECTILE DYSFUNCTION
     Dosage: 5 MG, QD
     Route: 065
  4. INSULIN [Concomitant]
     Active Substance: INSULIN NOS
     Dosage: UNK, UNKNOWN
     Route: 065

REACTIONS (10)
  - Drug ineffective [Unknown]
  - Babesiosis [Unknown]
  - Inappropriate schedule of drug administration [Unknown]
  - Bladder cancer [Unknown]
  - Lyme disease [Unknown]
  - Diabetes mellitus inadequate control [Unknown]
  - Weight increased [Unknown]
  - Respiratory tract infection [Not Recovered/Not Resolved]
  - Renal disorder [Unknown]
  - Hypotension [Unknown]
